FAERS Safety Report 12443097 (Version 2)
Quarter: 2016Q3

REPORT INFORMATION
  Report Type: Spontaneous
  Country: US (occurrence: US)
  Receive Date: 20160607
  Receipt Date: 20160815
  Transmission Date: 20161109
  Serious: Yes (Hospitalization, Other)
  Sender: FDA-Public Use
  Company Number: US-TEVA-665120USA

PATIENT
  Age: 69 Year
  Sex: Female
  Weight: 136 kg

DRUGS (1)
  1. COPAXONE [Suspect]
     Active Substance: GLATIRAMER ACETATE
     Indication: MULTIPLE SCLEROSIS
     Dosage: UNKNOWN FORM STRENGTH

REACTIONS (6)
  - Renal impairment [Unknown]
  - Hypernatraemia [Unknown]
  - Kidney infection [Unknown]
  - Urinary tract infection [Unknown]
  - Foot fracture [Unknown]
  - Cellulitis [Unknown]

NARRATIVE: CASE EVENT DATE: 20160524
